FAERS Safety Report 6017750-6 (Version None)
Quarter: 2008Q4

REPORT INFORMATION
  Report Type: 
  Country: None (occurrence: None)
  Receive Date: 20081223
  Receipt Date: 20081216
  Transmission Date: 20090506
  Serious: Yes (Hospitalization, Other)
  Sender: FDA-Public Use
  Company Number: BE-BIOGENIDEC-2008BI006988

PATIENT
  Age: 45 Year
  Sex: Female
  Weight: 51 kg

DRUGS (1)
  1. NATALIZUMAB [Suspect]
     Indication: MULTIPLE SCLEROSIS
     Route: 042
     Dates: start: 20061121, end: 20071129

REACTIONS (2)
  - HAEMOPTYSIS [None]
  - LUNG NEOPLASM MALIGNANT [None]
